FAERS Safety Report 20343533 (Version 1)
Quarter: 2022Q1

REPORT INFORMATION
  Report Type: Report from Study
  Country: US (occurrence: US)
  Receive Date: 20220118
  Receipt Date: 20220118
  Transmission Date: 20220423
  Serious: Yes (Hospitalization, Other)
  Sender: FDA-Public Use
  Company Number: US-BoehringerIngelheim-2021-BI-113120

PATIENT
  Age: 46 Year
  Sex: Male

DRUGS (3)
  1. OFEV [Suspect]
     Active Substance: NINTEDANIB
     Indication: Interstitial lung disease
     Route: 048
     Dates: start: 20210512
  2. OFEV [Suspect]
     Active Substance: NINTEDANIB
     Indication: Pulmonary sarcoidosis
  3. OFEV [Suspect]
     Active Substance: NINTEDANIB
     Indication: Sarcoidosis

REACTIONS (3)
  - Pneumonia [Unknown]
  - Pericardial effusion [Not Recovered/Not Resolved]
  - Pulmonary haemorrhage [Unknown]

NARRATIVE: CASE EVENT DATE: 20210601
